FAERS Safety Report 16033382 (Version 1)
Quarter: 2019Q1

REPORT INFORMATION
  Report Type: Spontaneous
  Country: US (occurrence: US)
  Receive Date: 20190205
  Receipt Date: 20190205
  Transmission Date: 20190418
  Serious: No
  Sender: FDA-Public Use
  Company Number: None

PATIENT
  Age: 23 Year
  Sex: Female

DRUGS (1)
  1. HYDROXYPROGESTERONE CAPROATE (NDC 66993-038-83) [Suspect]
     Active Substance: HYDROXYPROGESTERONE CAPROATE
     Dosage: ?          OTHER FREQUENCY:OTHER;?
     Route: 030
     Dates: start: 201901

REACTIONS (3)
  - Rash [None]
  - Depression [None]
  - Injection site pain [None]

NARRATIVE: CASE EVENT DATE: 20190205
